FAERS Safety Report 24753845 (Version 2)
Quarter: 2025Q1

REPORT INFORMATION
  Report Type: Spontaneous
  Country: FR (occurrence: FR)
  Receive Date: 20241219
  Receipt Date: 20250114
  Transmission Date: 20250409
  Serious: Yes (Death, Other)
  Sender: BAYER HEALTHCARE PHARMACEUTICALS INC.
  Company Number: FR-BAYER-2024A177558

PATIENT
  Sex: Male

DRUGS (1)
  1. ULTRAVIST [Suspect]
     Active Substance: IOPROMIDE
     Route: 013

REACTIONS (6)
  - Cardiac arrest [Fatal]
  - Loss of consciousness [None]
  - Malaise [None]
  - Cyanosis [None]
  - Anal incontinence [None]
  - Urinary incontinence [None]
